FAERS Safety Report 5808384-4 (Version None)
Quarter: 2008Q3

REPORT INFORMATION
  Report Type: 
  Country: None (occurrence: None)
  Receive Date: 20080714
  Receipt Date: 20080703
  Transmission Date: 20090109
  Serious: Yes (Other)
  Sender: FDA-Public Use
  Company Number: PHHY2008BR13005

PATIENT
  Age: 29 Year
  Sex: Female
  Weight: 45 kg

DRUGS (1)
  1. TEGRETOL [Suspect]

REACTIONS (4)
  - DYSPHONIA [None]
  - PRURITUS [None]
  - SUICIDE ATTEMPT [None]
  - VOMITING [None]
